FAERS Safety Report 8357399-3 (Version None)
Quarter: 2012Q2

REPORT INFORMATION
  Report Type: 
  Country: None (occurrence: None)
  Receive Date: 20120514
  Receipt Date: 20120509
  Transmission Date: 20120825
  Serious: Yes (Hospitalization, Other)
  Sender: FDA-Public Use
  Company Number: US-ROCHE-784203

PATIENT
  Sex: Male
  Weight: 113.5 kg

DRUGS (2)
  1. ACCUTANE [Suspect]
     Indication: ACNE
     Route: 065
     Dates: start: 19991227, end: 20000413
  2. NYSTATIN [Concomitant]

REACTIONS (9)
  - APPENDICITIS [None]
  - INFLAMMATORY BOWEL DISEASE [None]
  - DRY SKIN [None]
  - ARTHRALGIA [None]
  - LOWER GASTROINTESTINAL HAEMORRHAGE [None]
  - ANXIETY [None]
  - LIP DRY [None]
  - CROHN'S DISEASE [None]
  - SMALL INTESTINAL OBSTRUCTION [None]
